FAERS Safety Report 21493619 (Version 1)
Quarter: 2022Q4

REPORT INFORMATION
  Report Type: Spontaneous
  Country: US (occurrence: None)
  Receive Date: 20221021
  Receipt Date: 20221021
  Transmission Date: 20230113
  Serious: Yes (Other)
  Sender: FDA-Public Use
  Company Number: None

PATIENT
  Age: 36 Year
  Sex: Female
  Weight: 94.05 kg

DRUGS (3)
  1. SUBLOCADE [Suspect]
     Active Substance: BUPRENORPHINE
     Indication: Drug dependence
     Dosage: OTHER FREQUENCY : 28 DAYS;?
     Route: 058
  2. Wellbutren [Concomitant]
  3. TOPIRAMATE [Concomitant]
     Active Substance: TOPIRAMATE

REACTIONS (10)
  - Nonspecific reaction [None]
  - Wrong technique in product usage process [None]
  - Injection site pain [None]
  - Injection site discomfort [None]
  - Injection site necrosis [None]
  - Injection site infection [None]
  - Wound secretion [None]
  - Withdrawal syndrome [None]
  - Injection site erythema [None]
  - Scar [None]

NARRATIVE: CASE EVENT DATE: 20221015
